FAERS Safety Report 15242943 (Version 1)
Quarter: 2018Q3

REPORT INFORMATION
  Report Type: Spontaneous
  Country: US (occurrence: US)
  Receive Date: 20180806
  Receipt Date: 20180806
  Transmission Date: 20181010
  Serious: Yes (Hospitalization, Other)
  Sender: FDA-Public Use
  Company Number: US-ALEMBIC PHARMACUETICALS LIMITED-2018SCAL000570

PATIENT

DRUGS (4)
  1. FLUOXETINE HYDROCHLORIDE. [Suspect]
     Active Substance: FLUOXETINE HYDROCHLORIDE
     Indication: DEPRESSION
  2. OLANZAPINE. [Suspect]
     Active Substance: OLANZAPINE
     Indication: SCHIZOPHRENIA
     Dosage: UNK
  3. FLUOXETINE HYDROCHLORIDE. [Suspect]
     Active Substance: FLUOXETINE HYDROCHLORIDE
     Indication: SCHIZOPHRENIA
     Dosage: UNK
  4. OLANZAPINE. [Suspect]
     Active Substance: OLANZAPINE
     Indication: DEPRESSION

REACTIONS (20)
  - Myalgia [Unknown]
  - Encephalopathy [Recovering/Resolving]
  - Nausea [Recovering/Resolving]
  - Hyperreflexia [Recovering/Resolving]
  - Myoclonus [Recovering/Resolving]
  - Diarrhoea [Recovering/Resolving]
  - Restlessness [Unknown]
  - Autonomic nervous system imbalance [Recovering/Resolving]
  - Serotonin syndrome [Recovering/Resolving]
  - Confusional state [Recovering/Resolving]
  - Rhabdomyolysis [Unknown]
  - Hyperkalaemia [Unknown]
  - Lactic acidosis [Unknown]
  - Atrial flutter [Unknown]
  - Lethargy [Recovering/Resolving]
  - Hyperhidrosis [Unknown]
  - Vomiting [Recovering/Resolving]
  - Chills [Unknown]
  - Pyrexia [Recovering/Resolving]
  - Blood pressure abnormal [Unknown]
